FAERS Safety Report 12621884 (Version 1)
Quarter: 2016Q3

REPORT INFORMATION
  Report Type: Spontaneous
  Country: US (occurrence: US)
  Receive Date: 20160804
  Receipt Date: 20160804
  Transmission Date: 20161109
  Serious: No
  Sender: FDA-Public Use
  Company Number: US-ANTARES PHARMA, INC.-2016-SPO-MX-0191

PATIENT
  Sex: Male

DRUGS (1)
  1. OTREXUP [Suspect]
     Active Substance: METHOTREXATE
     Indication: PSORIATIC ARTHROPATHY
     Dosage: 20 MG/0.4ML, QWK
     Route: 058

REACTIONS (3)
  - Injection site bruising [Recovered/Resolved]
  - Device issue [None]
  - Scratch [Recovered/Resolved]

NARRATIVE: CASE EVENT DATE: 20160410
